FAERS Safety Report 9437931 (Version 1)
Quarter: 2013Q3

REPORT INFORMATION
  Report Type: Spontaneous
  Country: US (occurrence: US)
  Receive Date: 20130802
  Receipt Date: 20130802
  Transmission Date: 20140515
  Serious: No
  Sender: FDA-Public Use
  Company Number: US-BRISTOL-MYERS SQUIBB COMPANY-18766865

PATIENT
  Sex: Female

DRUGS (2)
  1. COUMADIN TABS [Suspect]
     Indication: DEEP VEIN THROMBOSIS
     Dosage: TWICE
  2. WARFARIN SODIUM [Suspect]
     Indication: DEEP VEIN THROMBOSIS
     Route: 048

REACTIONS (2)
  - Contusion [Unknown]
  - Gastrointestinal disorder [Unknown]
